FAERS Safety Report 24063286 (Version 1)
Quarter: 2024Q3

REPORT INFORMATION
  Report Type: Spontaneous
  Country: CA (occurrence: CA)
  Receive Date: 20240709
  Receipt Date: 20240709
  Transmission Date: 20241017
  Serious: Yes (Death, Other)
  Sender: ALKEM
  Company Number: CA-ALKEM LABORATORIES LIMITED-CA-ALKEM-2024-14480

PATIENT
  Age: 38 Year
  Sex: Male

DRUGS (2)
  1. METHADONE HYDROCHLORIDE [Suspect]
     Active Substance: METHADONE HYDROCHLORIDE
     Indication: Product used for unknown indication
     Dosage: UNK
     Route: 065
  2. PREGABALIN [Suspect]
     Active Substance: PREGABALIN
     Indication: Product used for unknown indication
     Dosage: UNK
     Route: 065

REACTIONS (3)
  - Gastrointestinal haemorrhage [Fatal]
  - Drug level increased [Unknown]
  - Toxicity to various agents [Unknown]
